FAERS Safety Report 24597753 (Version 1)
Quarter: 2024Q4

REPORT INFORMATION
  Report Type: Spontaneous
  Country: US (occurrence: US)
  Receive Date: 20241110
  Receipt Date: 20241110
  Transmission Date: 20250115
  Serious: No
  Sender: SANOFI AVENTIS
  Company Number: US-SA-2024SA315027

PATIENT
  Age: 84 Year
  Sex: Female

DRUGS (11)
  1. DUPIXENT [Suspect]
     Active Substance: DUPILUMAB
     Indication: Dermatitis atopic
     Dosage: 300 MG (FREQUENY: OTHER)
     Route: 058
     Dates: start: 20220803
  2. NOVOLOG [Concomitant]
     Active Substance: INSULIN ASPART
  3. INDAPAMIDE [Concomitant]
     Active Substance: INDAPAMIDE
  4. ATORVASTATIN [Concomitant]
     Active Substance: ATORVASTATIN
  5. AMLODIPINE [Concomitant]
     Active Substance: AMLODIPINE BESYLATE
  6. CARVEDILOL [Concomitant]
     Active Substance: CARVEDILOL
  7. AVAPRO [Concomitant]
     Active Substance: IRBESARTAN
  8. VITAMIN D3 [Concomitant]
     Active Substance: CHOLECALCIFEROL
  9. CLOBETASOL [Concomitant]
     Active Substance: CLOBETASOL
  10. CYANOCOBALAMIN [Concomitant]
     Active Substance: CYANOCOBALAMIN
  11. LANTUS [Concomitant]
     Active Substance: INSULIN GLARGINE

REACTIONS (1)
  - Injection site pain [Unknown]
